FAERS Safety Report 22006592 (Version 3)
Quarter: 2023Q1

REPORT INFORMATION
  Report Type: Spontaneous
  Country: CA (occurrence: CA)
  Receive Date: 20230217
  Receipt Date: 20230327
  Transmission Date: 20230418
  Serious: Yes (Death, Other)
  Sender: FDA-Public Use
  Company Number: CA-SHIONOGI, INC-2023000241

PATIENT
  Age: 65 Year
  Sex: Male

DRUGS (12)
  1. FETROJA [Suspect]
     Active Substance: CEFIDEROCOL SULFATE TOSYLATE
     Indication: Pneumonia bacterial
     Dosage: 1.5 G, 8 HOUR
     Route: 042
     Dates: start: 20230210
  2. FETROJA [Suspect]
     Active Substance: CEFIDEROCOL SULFATE TOSYLATE
     Indication: Citrobacter bacteraemia
     Dosage: 1 G, 8 HOUR
     Route: 042
     Dates: end: 20230216
  3. FOSFOMYCIN [Suspect]
     Active Substance: FOSFOMYCIN
     Indication: Pneumonia bacterial
     Dosage: 8 G, 8 HOUR
     Route: 042
     Dates: start: 20230208
  4. FOSFOMYCIN [Suspect]
     Active Substance: FOSFOMYCIN
     Indication: Citrobacter bacteraemia
     Dosage: 4 G, 8 HOUR
     Route: 042
     Dates: end: 20230218
  5. MEROPENEM [Concomitant]
     Active Substance: MEROPENEM
     Indication: Pneumonia
     Dosage: UNK
     Route: 065
     Dates: start: 20230206
  6. MEROPENEM [Concomitant]
     Active Substance: MEROPENEM
     Indication: Cholecystitis
  7. VANCOMYCIN [Concomitant]
     Active Substance: VANCOMYCIN
     Indication: Pneumonia
     Dosage: UNK
     Route: 065
     Dates: start: 20230206
  8. VANCOMYCIN [Concomitant]
     Active Substance: VANCOMYCIN
     Indication: Cholecystitis
  9. TIGECYCLINE [Concomitant]
     Active Substance: TIGECYCLINE
     Indication: Pneumonia
     Dosage: 50 MG, 12 HOUR
     Route: 042
     Dates: start: 20230208, end: 20230212
  10. TIGECYCLINE [Concomitant]
     Active Substance: TIGECYCLINE
     Indication: Citrobacter infection
  11. AMIKACIN [Concomitant]
     Active Substance: AMIKACIN
     Indication: Pneumonia
     Dosage: 500 MG, 12 HOUR
     Dates: start: 20230208, end: 20230212
  12. COLISTIN [Concomitant]
     Active Substance: COLISTIN
     Indication: Citrobacter infection
     Dosage: UNK
     Dates: start: 20230208

REACTIONS (3)
  - Multiple organ dysfunction syndrome [Fatal]
  - Rhabdomyolysis [Recovered/Resolved]
  - Pyrexia [Recovered/Resolved]

NARRATIVE: CASE EVENT DATE: 20230201
